FAERS Safety Report 9104281 (Version 1)
Quarter: 2013Q1

REPORT INFORMATION
  Report Type: Spontaneous
  Country: US (occurrence: US)
  Receive Date: 20130220
  Receipt Date: 20130220
  Transmission Date: 20140127
  Serious: Yes (Other)
  Sender: FDA-Public Use
  Company Number: US-BAYER-2013-021470

PATIENT
  Sex: 0

DRUGS (4)
  1. ALEVE CAPLET/TABLET,MIDOL EXTENDED RELIEF CAPLET [Suspect]
  2. CORTISONE [Concomitant]
  3. ZANAFLEX [Concomitant]
  4. MEDROL [METHYLPREDNISOLONE] [Concomitant]

REACTIONS (2)
  - Gastritis [None]
  - Oedema [None]
